FAERS Safety Report 4503400-4 (Version None)
Quarter: 2004Q4

REPORT INFORMATION
  Report Type: 
  Country: None (occurrence: None)
  Receive Date: 20041117
  Receipt Date: 20041112
  Transmission Date: 20050328
  Serious: Yes (Death, Hospitalization)
  Sender: FDA-Public Use
  Company Number: FR-GLAXOSMITHKLINE-B0351258A

PATIENT
  Age: 73 Year
  Sex: Male

DRUGS (1)
  1. CLAMOXYL [Suspect]
     Indication: URINARY TRACT INFECTION
     Route: 065

REACTIONS (8)
  - DEATH [None]
  - EXANTHEM [None]
  - HAEMORRHAGE SUBEPIDERMAL [None]
  - HYPONATRAEMIA [None]
  - PETECHIAE [None]
  - RASH [None]
  - THROMBOCYTOPENIA [None]
  - VASCULITIS [None]
